FAERS Safety Report 5097719-9 (Version None)
Quarter: 2006Q3

REPORT INFORMATION
  Report Type: 
  Country: None (occurrence: None)
  Receive Date: 20060901
  Receipt Date: 20060816
  Transmission Date: 20061208
  Serious: Yes (Hospitalization)
  Sender: FDA-Public Use
  Company Number: US200608003338

PATIENT
  Age: 44 Year
  Sex: Female
  Weight: 108.8 kg

DRUGS (1)
  1. ZYPREXA [Suspect]
     Indication: PANIC DISORDER
     Dosage: 2.5 MG
     Dates: start: 19991101, end: 20000701

REACTIONS (5)
  - DIABETES MELLITUS [None]
  - HYPOGLYCAEMIA [None]
  - INSULIN RESISTANCE [None]
  - METABOLIC DISORDER [None]
  - MYOCARDIAL INFARCTION [None]
